FAERS Safety Report 8906638 (Version 1)
Quarter: 2012Q4

REPORT INFORMATION
  Report Type: 
  Country: US (occurrence: US)
  Receive Date: 20121113
  Receipt Date: 20121113
  Transmission Date: 20130627
  Serious: No
  Sender: FDA-Public Use
  Company Number: US-AMGEN-USASP2012011090

PATIENT
  Age: 66 Year
  Sex: Female
  Weight: 65.76 kg

DRUGS (8)
  1. ENBREL [Suspect]
     Indication: PRODUCT USED FOR UNKNOWN INDICATION
     Dosage: 50 mg, qwk
  2. SIMVASTATIN [Concomitant]
     Dosage: 40 mg, UNK
  3. FOLIC ACID [Concomitant]
     Dosage: 1 mg, UNK
  4. OSCAL [Concomitant]
  5. ZETIA [Concomitant]
     Dosage: 10 mg, UNK
  6. OMEGA 3                            /01334101/ [Concomitant]
  7. MULTIVITAMIN                       /00097801/ [Concomitant]
  8. ASPIRIN [Concomitant]
     Dosage: 81 mg, UNK

REACTIONS (1)
  - Thyroiditis [Unknown]
